FAERS Safety Report 23237139 (Version 1)
Quarter: 2023Q4

REPORT INFORMATION
  Report Type: Spontaneous
  Country: US (occurrence: US)
  Receive Date: 20231128
  Receipt Date: 20231128
  Transmission Date: 20240110
  Serious: No
  Sender: FDA-Public Use
  Company Number: US-OPELLA-2023OHG015537

PATIENT
  Age: 67 Year
  Sex: Female

DRUGS (1)
  1. DULCOLAX CHEWY BITES ASSORTED FRUITS [Suspect]
     Active Substance: MAGNESIUM HYDROXIDE

REACTIONS (3)
  - Dizziness [Unknown]
  - Frequent bowel movements [Unknown]
  - Underdose [Unknown]
